FAERS Safety Report 17306417 (Version 1)
Quarter: 2020Q1

REPORT INFORMATION
  Report Type: Report from Study
  Country: US (occurrence: US)
  Receive Date: 20200123
  Receipt Date: 20200123
  Transmission Date: 20200409
  Serious: Yes (Other)
  Sender: FDA-Public Use
  Company Number: US-ROCHE-2209962

PATIENT
  Age: 46 Year
  Sex: Female
  Weight: 68.1 kg

DRUGS (11)
  1. OCREVUS [Suspect]
     Active Substance: OCRELIZUMAB
     Route: 042
     Dates: start: 20181120, end: 201911
  2. TRIFOLIUM PRATENSE [Concomitant]
     Active Substance: TRIFOLIUM PRATENSE FLOWER
     Route: 048
  3. MILK THISTLE [SILYBUM MARIANUM] [Concomitant]
     Active Substance: DIETARY SUPPLEMENT\HERBALS\MILK THISTLE
     Route: 048
  4. BUPROPION. [Concomitant]
     Active Substance: BUPROPION
     Indication: DEPRESSION
     Route: 048
  5. RITUXAN [Suspect]
     Active Substance: RITUXIMAB
     Indication: MULTIPLE SCLEROSIS
     Dosage: ONGOING:NO
     Route: 042
     Dates: start: 2009, end: 2018
  6. BIOTIN [Concomitant]
     Active Substance: BIOTIN
     Route: 048
  7. OCREVUS [Suspect]
     Active Substance: OCRELIZUMAB
     Indication: RELAPSING MULTIPLE SCLEROSIS
     Dosage: HALF DOSE
     Route: 042
     Dates: start: 20181026
  8. ESSIAC [Concomitant]
     Route: 048
  9. BACLOFEN. [Concomitant]
     Active Substance: BACLOFEN
     Indication: MUSCLE SPASMS
     Route: 048
  10. MIRTAZAPINE. [Concomitant]
     Active Substance: MIRTAZAPINE
     Indication: DEPRESSION
     Dosage: ONGOING YES
     Route: 048
     Dates: start: 201908
  11. RITUXAN [Suspect]
     Active Substance: RITUXIMAB
     Route: 042
     Dates: start: 201912

REACTIONS (12)
  - JC polyomavirus test positive [Unknown]
  - Pain [Unknown]
  - Intentional product use issue [Unknown]
  - Suicidal ideation [Recovered/Resolved]
  - Crying [Not Recovered/Not Resolved]
  - Headache [Unknown]
  - Headache [Recovered/Resolved]
  - Off label use [Unknown]
  - Personality change [Recovered/Resolved]
  - Amnesia [Not Recovered/Not Resolved]
  - Suicidal ideation [Recovering/Resolving]
  - Diarrhoea [Recovered/Resolved]

NARRATIVE: CASE EVENT DATE: 20180822
